FAERS Safety Report 18256359 (Version 1)
Quarter: 2020Q3

REPORT INFORMATION
  Report Type: Spontaneous
  Country: FR (occurrence: FR)
  Receive Date: 20200911
  Receipt Date: 20200911
  Transmission Date: 20201103
  Serious: Yes (Hospitalization)
  Sender: FDA-Public Use
  Company Number: FR-ACCORD-200375

PATIENT
  Age: 48 Year
  Sex: Female
  Weight: 41 kg

DRUGS (7)
  1. IRINOTECAN MYLAN [Suspect]
     Active Substance: IRINOTECAN
     Indication: RECTAL CANCER
     Dosage: STRENGTH: 20 MG / ML
     Route: 041
     Dates: start: 20200720
  2. OXALIPLATIN ACCORD [Suspect]
     Active Substance: OXALIPLATIN
     Indication: PRODUCT USED FOR UNKNOWN INDICATION
     Dosage: STRENGTH: 5 MG / ML
     Route: 041
     Dates: start: 20200720
  3. EMEND [Concomitant]
     Active Substance: APREPITANT
     Dosage: STRENGTH: 125 MG
     Route: 048
     Dates: start: 20200720
  4. ONDANSETRON. [Concomitant]
     Active Substance: ONDANSETRON
     Dosage: STRENGTH: 2 MG / ML
     Route: 041
     Dates: start: 20200720
  5. FLUOROURACIL TEVA [Concomitant]
     Active Substance: FLUOROURACIL
     Dosage: STRENGTH: 5000 MG / 100 ML
     Route: 041
     Dates: start: 20200720
  6. FOLINIC ACID [Concomitant]
     Active Substance: LEUCOVORIN
     Route: 041
     Dates: start: 20200720
  7. METHYLPREDNISOLONE. [Concomitant]
     Active Substance: METHYLPREDNISOLONE
     Route: 041
     Dates: start: 20200720

REACTIONS (4)
  - Tremor [Recovered/Resolved]
  - Dysarthria [Recovered/Resolved]
  - Sensorimotor disorder [Recovered/Resolved]
  - Infusion related reaction [Recovered/Resolved]

NARRATIVE: CASE EVENT DATE: 20200720
